FAERS Safety Report 7493691-2 (Version None)
Quarter: 2011Q2

REPORT INFORMATION
  Report Type: 
  Country: None (occurrence: None)
  Receive Date: 20110520
  Receipt Date: 20110509
  Transmission Date: 20111010
  Serious: Yes (Other)
  Sender: FDA-Public Use
  Company Number: GB-ELI_LILLY_AND_COMPANY-GB201011006971

PATIENT
  Sex: Male
  Weight: 115 kg

DRUGS (16)
  1. LANTUS [Suspect]
     Indication: TYPE 2 DIABETES MELLITUS
     Dosage: 12 U, UNK
     Dates: start: 20090721
  2. METFORMIN HCL [Suspect]
     Indication: TYPE 2 DIABETES MELLITUS
     Dosage: 2 G, UNK
     Dates: start: 20070425
  3. ASPIRIN [Concomitant]
     Dates: start: 20071111
  4. DUTASTERIDE [Concomitant]
     Dates: start: 20071111
  5. SIMVASTATIN [Concomitant]
     Indication: ARTERIOSCLEROSIS CORONARY ARTERY
     Dates: start: 20070131
  6. BENDROFLUMETHIAZIDE [Concomitant]
     Indication: HYPERTENSION
     Dates: start: 20080212
  7. LANTUS [Suspect]
     Dosage: 102 U, EACH EVENING
     Dates: start: 20100427
  8. TRAMADOL HCL [Concomitant]
     Indication: ANGIOPATHY
     Dates: start: 20071111
  9. DILTIAZEM [Concomitant]
     Indication: ANGINA PECTORIS
     Dates: start: 20070215
  10. LANSOPRAZOLE [Concomitant]
     Dates: start: 20070111
  11. RAMIPRIL [Concomitant]
     Indication: HYPERTENSION
     Dates: start: 20071128
  12. EXENATIDE [Suspect]
     Indication: TYPE 2 DIABETES MELLITUS
     Dosage: 20 UG, 2/D
     Route: 058
     Dates: start: 20100427, end: 20100706
  13. TAMSULOSIN HCL [Concomitant]
     Dates: start: 20071111
  14. GLICLAZIDE [Concomitant]
     Indication: DIABETES MELLITUS
     Dates: start: 20071023
  15. NITROGLYCERIN [Concomitant]
     Indication: ANGINA PECTORIS
     Dates: start: 20070215
  16. NICORANDIL [Concomitant]
     Dates: start: 20070215

REACTIONS (1)
  - PANCREATIC CARCINOMA [None]
